FAERS Safety Report 7062092-3 (Version None)
Quarter: 2010Q4

REPORT INFORMATION
  Report Type: 
  Country: None (occurrence: None)
  Receive Date: 20101026
  Receipt Date: 20101013
  Transmission Date: 20110411
  Serious: Yes (Hospitalization, Other)
  Sender: FDA-Public Use
  Company Number: PHHY2010US66841

PATIENT
  Sex: Male
  Weight: 72.562 kg

DRUGS (5)
  1. TEKTURNA [Suspect]
     Indication: HYPERTENSION
     Dosage: 150 MG Q DAY
     Route: 048
     Dates: start: 20100316, end: 20100406
  2. VYTORIN [Interacting]
     Indication: HYPERLIPIDAEMIA
     Dosage: 10/40 MG Q DAY
     Route: 048
     Dates: start: 20090615, end: 20100406
  3. ASPIRIN [Concomitant]
  4. INSULIN [Concomitant]
  5. HYDRALAZINE [Concomitant]

REACTIONS (9)
  - DRUG INTERACTION [None]
  - FATIGUE [None]
  - GAIT DISTURBANCE [None]
  - HYPERKALAEMIA [None]
  - MUSCULAR WEAKNESS [None]
  - MUSCULOSKELETAL STIFFNESS [None]
  - MYALGIA [None]
  - RENAL FAILURE ACUTE [None]
  - RHABDOMYOLYSIS [None]
